FAERS Safety Report 15969339 (Version 6)
Quarter: 2022Q1

REPORT INFORMATION
  Report Type: Spontaneous
  Country: US (occurrence: None)
  Receive Date: 20190215
  Receipt Date: 20220315
  Transmission Date: 20220423
  Serious: Yes (Hospitalization, Other)
  Sender: FDA-Public Use
  Company Number: 2018SF64905

PATIENT
  Age: 62 Year
  Sex: Male
  Weight: 104.3 kg

DRUGS (51)
  1. NEXIUM [Suspect]
     Active Substance: ESOMEPRAZOLE MAGNESIUM
     Indication: Gastrooesophageal reflux disease
     Route: 048
     Dates: start: 20000101, end: 20181231
  2. NEXIUM [Suspect]
     Active Substance: ESOMEPRAZOLE MAGNESIUM
     Indication: Gastrooesophageal reflux disease
     Route: 048
  3. NEXIUM [Suspect]
     Active Substance: ESOMEPRAZOLE MAGNESIUM
     Indication: Gastrooesophageal reflux disease
     Route: 048
     Dates: start: 20170828
  4. NEXIUM [Suspect]
     Active Substance: ESOMEPRAZOLE MAGNESIUM
     Indication: Gastrooesophageal reflux disease
     Route: 048
     Dates: start: 200102, end: 201812
  5. NEXIUM [Suspect]
     Active Substance: ESOMEPRAZOLE MAGNESIUM
     Indication: Gastrooesophageal reflux disease
     Dosage: GENERIC
     Route: 065
     Dates: start: 201512, end: 201909
  6. NEXIUM 24HR [Suspect]
     Active Substance: ESOMEPRAZOLE MAGNESIUM
     Indication: Gastrooesophageal reflux disease
     Route: 048
     Dates: start: 201403, end: 2018
  7. PRILOSEC [Suspect]
     Active Substance: OMEPRAZOLE MAGNESIUM
     Indication: Gastrooesophageal reflux disease
     Route: 048
     Dates: start: 2000, end: 201812
  8. PRILOSEC [Suspect]
     Active Substance: OMEPRAZOLE MAGNESIUM
     Indication: Gastrooesophageal reflux disease
     Dosage: GENERIC
     Route: 065
     Dates: start: 2017
  9. PRILOSEC OTC [Suspect]
     Active Substance: OMEPRAZOLE MAGNESIUM
     Indication: Gastrooesophageal reflux disease
     Route: 048
     Dates: start: 2003, end: 2019
  10. DEXILANT [Suspect]
     Active Substance: DEXLANSOPRAZOLE
     Indication: Gastrooesophageal reflux disease
     Route: 065
     Dates: start: 2009, end: 2018
  11. PREVACID [Suspect]
     Active Substance: LANSOPRAZOLE
     Indication: Gastrooesophageal reflux disease
     Route: 065
     Dates: start: 2000, end: 2018
  12. PREVACID [Suspect]
     Active Substance: LANSOPRAZOLE
     Indication: Gastrooesophageal reflux disease
     Dosage: GENERIC
     Route: 065
     Dates: start: 2017
  13. PREVACID 24 HR [Suspect]
     Active Substance: LANSOPRAZOLE
     Indication: Gastrooesophageal reflux disease
     Route: 065
     Dates: start: 2009, end: 2018
  14. PROTONIX [Suspect]
     Active Substance: PANTOPRAZOLE SODIUM
     Indication: Gastrooesophageal reflux disease
     Route: 065
     Dates: start: 2016, end: 2017
  15. PANTOPRAZOLE [Suspect]
     Active Substance: PANTOPRAZOLE
     Indication: Gastrooesophageal reflux disease
     Route: 065
     Dates: start: 2016
  16. ROLAIDS [Concomitant]
     Active Substance: CALCIUM CARBONATE\MAGNESIUM HYDROXIDE
  17. TUMS [Concomitant]
     Active Substance: CALCIUM CARBONATE
  18. MAALOX ANTACID [Concomitant]
     Active Substance: ALUMINUM HYDROXIDE\DIMETHICONE\MAGNESIUM HYDROXIDE
  19. ALPRAZOLAM [Concomitant]
     Active Substance: ALPRAZOLAM
  20. CELEXA [Concomitant]
     Active Substance: CITALOPRAM HYDROBROMIDE
  21. GABAPENTIN [Concomitant]
     Active Substance: GABAPENTIN
  22. AMITRIPTYLINE [Concomitant]
     Active Substance: AMITRIPTYLINE
     Indication: Depression
     Dates: start: 201804, end: 202003
  23. ATORVASTATIN [Concomitant]
     Active Substance: ATORVASTATIN
     Indication: Blood cholesterol increased
     Dates: start: 201910, end: 202003
  24. HYDROXYZINE [Concomitant]
     Active Substance: HYDROXYZINE HYDROCHLORIDE
     Indication: Anxiety
     Dates: start: 201804, end: 202003
  25. SULFAMETHOXAZOLE\TRIMETHOPRIM [Concomitant]
     Active Substance: SULFAMETHOXAZOLE\TRIMETHOPRIM
     Indication: Infection
     Dates: start: 201901, end: 201902
  26. PEPCID AC [Concomitant]
     Active Substance: FAMOTIDINE
  27. ZANTAC [Concomitant]
     Active Substance: RANITIDINE HYDROCHLORIDE
  28. RANITIDINE [Concomitant]
     Active Substance: RANITIDINE
     Dates: start: 201803, end: 202003
  29. ALKA-SELTZER [Concomitant]
     Active Substance: ANHYDROUS CITRIC ACID\ASPIRIN\SODIUM BICARBONATE
     Dates: start: 201803, end: 202003
  30. ELIQUIS [Concomitant]
     Active Substance: APIXABAN
  31. OMEGA 3 [Concomitant]
     Active Substance: CAPSAICIN
  32. VITAMIN B12 [Concomitant]
     Active Substance: CYANOCOBALAMIN
  33. KETOCONAZOLE [Concomitant]
     Active Substance: KETOCONAZOLE
  34. METFORMIN [Concomitant]
     Active Substance: METFORMIN HYDROCHLORIDE
  35. NITROGLYCERIN [Concomitant]
     Active Substance: NITROGLYCERIN
  36. TOPIRAMATES [Concomitant]
  37. FENOFIBRATE [Concomitant]
     Active Substance: FENOFIBRATE
  38. ONDANSETRON [Concomitant]
     Active Substance: ONDANSETRON
  39. CYCLOBENZAPRINE [Concomitant]
     Active Substance: CYCLOBENZAPRINE
  40. CLOPIDOGREL BISULFATE [Concomitant]
     Active Substance: CLOPIDOGREL BISULFATE
  41. DILTIAZEM [Concomitant]
     Active Substance: DILTIAZEM
  42. COLACE [Concomitant]
     Active Substance: DOCUSATE SODIUM
  43. SCOPOLAMINE [Concomitant]
     Active Substance: SCOPOLAMINE
  44. TIZANIDINE [Concomitant]
     Active Substance: TIZANIDINE
  45. DOCUSATE [Concomitant]
     Active Substance: DOCUSATE
  46. GLUCAGON [Concomitant]
     Active Substance: GLUCAGON
  47. DEXTROSE [Concomitant]
     Active Substance: DEXTROSE
  48. MORPHINE [Concomitant]
     Active Substance: MORPHINE
  49. MAGNESIUM SULFATE [Concomitant]
     Active Substance: MAGNESIUM SULFATE
  50. POTASSIUM CHLORIDE [Concomitant]
     Active Substance: POTASSIUM CHLORIDE
  51. HYDRALAZINE [Concomitant]
     Active Substance: HYDRALAZINE HYDROCHLORIDE

REACTIONS (4)
  - Acute kidney injury [Not Recovered/Not Resolved]
  - Chronic kidney disease [Not Recovered/Not Resolved]
  - Renal injury [Unknown]
  - Renal failure [Unknown]

NARRATIVE: CASE EVENT DATE: 20170101
